FAERS Safety Report 9528599 (Version 1)
Quarter: 2013Q1

REPORT INFORMATION
  Report Type: Spontaneous
  Country: US (occurrence: None)
  Receive Date: 20130314
  Receipt Date: 20130314
  Transmission Date: 20140127
  Serious: No
  Sender: FDA-Public Use
  Company Number: 1211USA011396

PATIENT
  Sex: 0

DRUGS (3)
  1. PEGINTRON [Suspect]
     Indication: HEPATITIS C
     Route: 058
  2. RIBAVIRIN [Suspect]
     Indication: HEPATITIS C
     Dates: start: 20121123
  3. BOCEPREVIR [Suspect]
     Indication: HEPATITIS C
     Dates: start: 20121123

REACTIONS (3)
  - Pyrexia [None]
  - Influenza like illness [None]
  - Drug dose omission [None]
